FAERS Safety Report 4945973-3 (Version None)
Quarter: 2006Q1

REPORT INFORMATION
  Report Type: 
  Country: None (occurrence: None)
  Receive Date: 20060316
  Receipt Date: 20060223
  Transmission Date: 20060701
  Serious: Yes (Hospitalization)
  Sender: FDA-Public Use
  Company Number: US-MERCK-0602USA05412

PATIENT
  Age: 28 Year
  Sex: Female

DRUGS (6)
  1. SINGULAIR [Suspect]
     Indication: ASTHMA
     Route: 048
     Dates: start: 20000101
  2. FLOVENT [Concomitant]
     Route: 065
  3. ATROVENT [Concomitant]
     Route: 065
  4. [THERAPY UNSPECIFIED] [Concomitant]
     Route: 065
  5. ZOLOFT [Concomitant]
     Route: 065
  6. PAXIL [Concomitant]
     Route: 065

REACTIONS (4)
  - INTRA-ABDOMINAL HAEMORRHAGE [None]
  - MENORRHAGIA [None]
  - UTERINE DISORDER [None]
  - VASCULAR RUPTURE [None]
